FAERS Safety Report 8076724-4 (Version None)
Quarter: 2012Q1

REPORT INFORMATION
  Report Type: 
  Country: None (occurrence: None)
  Receive Date: 20120127
  Receipt Date: 20120119
  Transmission Date: 20120608
  Serious: Yes (Other)
  Sender: FDA-Public Use
  Company Number: CHPA2012US001770

PATIENT
  Sex: Female

DRUGS (2)
  1. EXCEDRIN (MIGRAINE) [Suspect]
     Indication: MIGRAINE
     Dosage: UNK DF, UNK
     Route: 048
  2. TOPAMAX [Suspect]
     Indication: MIGRAINE
     Dosage: 300 MG, BID
     Route: 048
     Dates: start: 20050101

REACTIONS (1)
  - NEPHROLITHIASIS [None]
